FAERS Safety Report 10155111 (Version 1)
Quarter: 2014Q2

REPORT INFORMATION
  Report Type: Spontaneous
  Country: DE (occurrence: DE)
  Receive Date: 20140506
  Receipt Date: 20140506
  Transmission Date: 20141212
  Serious: Yes (Congenital Anomaly, Other)
  Sender: FDA-Public Use
  Company Number: DE-WATSON-2014-08815

PATIENT
  Age: 28 Day
  Sex: 0

DRUGS (5)
  1. CITALOPRAM (UNKNOWN) [Suspect]
     Indication: PANIC DISORDER
     Dosage: 20 MG, DAILY (WEEK 28+3 DAYS)
     Route: 064
     Dates: start: 20110829, end: 20120430
  2. CITALOPRAM (UNKNOWN) [Suspect]
     Dosage: 10 MG, DAILY
     Route: 064
  3. GRIPPE IMPFSTOFF [Suspect]
     Indication: IMMUNISATION
     Dosage: UNK
     Route: 064
     Dates: start: 20111227, end: 20111227
  4. L-THYROXIN [Concomitant]
     Indication: HYPOTHYROIDISM
     Dosage: 75 MCG DAILY
     Route: 064
     Dates: start: 20110829, end: 20120610
  5. FOLIC ACID [Concomitant]
     Indication: PROPHYLAXIS OF NEURAL TUBE DEFECT
     Dosage: UNK
     Route: 064

REACTIONS (3)
  - Deafness [Unknown]
  - Ototoxicity [Unknown]
  - Maternal exposure during pregnancy [Unknown]
